FAERS Safety Report 11722660 (Version 1)
Quarter: 2015Q4

REPORT INFORMATION
  Report Type: Spontaneous
  Country: US (occurrence: US)
  Receive Date: 20151111
  Receipt Date: 20151111
  Transmission Date: 20160304
  Serious: No
  Sender: FDA-Public Use
  Company Number: US-PFIZER INC-2015368578

PATIENT
  Age: 64 Year
  Sex: Female
  Weight: 91 kg

DRUGS (7)
  1. LYRICA [Suspect]
     Active Substance: PREGABALIN
     Indication: SPINAL CORD INJURY
     Dosage: 75 UNK, (TWO)
     Dates: start: 20151024, end: 20151027
  2. LYRICA [Suspect]
     Active Substance: PREGABALIN
     Indication: NEURALGIA
     Dosage: 75 MG, UNK
     Dates: start: 20151020
  3. PROCARDIA [Concomitant]
     Active Substance: NIFEDIPINE
     Dosage: UNK
  4. HYDROCHLOROTHIAZIDE. [Concomitant]
     Active Substance: HYDROCHLOROTHIAZIDE
     Dosage: UNK
  5. NORCO [Concomitant]
     Active Substance: ACETAMINOPHEN\HYDROCODONE BITARTRATE
     Dosage: UNK (325/10)
  6. LISINOPRIL. [Concomitant]
     Active Substance: LISINOPRIL
     Dosage: UNK
  7. VITAMIN D [Concomitant]
     Active Substance: CHOLECALCIFEROL
     Dosage: UNK

REACTIONS (12)
  - Headache [Unknown]
  - Swelling [Unknown]
  - Mood altered [Unknown]
  - Vision blurred [Unknown]
  - Pain in extremity [Unknown]
  - Dizziness [Unknown]
  - Feeling abnormal [Unknown]
  - Tremor [Unknown]
  - Somnolence [Unknown]
  - Pain [Unknown]
  - Dyskinesia [Unknown]
  - Disturbance in attention [Unknown]

NARRATIVE: CASE EVENT DATE: 201510
